FAERS Safety Report 23825929 (Version 7)
Quarter: 2024Q4

REPORT INFORMATION
  Report Type: Report from Study
  Country: CA (occurrence: CA)
  Receive Date: 20240507
  Receipt Date: 20241223
  Transmission Date: 20250115
  Serious: Yes (Other)
  Sender: TAIHO ONCOLOGY INC
  Company Number: CA-OTSUKA-2023_032822

PATIENT
  Age: 75 Year
  Sex: Female

DRUGS (2)
  1. INQOVI [Suspect]
     Active Substance: CEDAZURIDINE\DECITABINE
     Indication: Myelodysplastic syndrome
     Dosage: 1 DF (35 MG DECITABINE AND 100 MG CEDAZURIDINE) DAILY ON DAYS 1-5 OF EACH 28-DAY CYCLE.?DAILY DOSE:
     Route: 048
     Dates: start: 20231213
  2. INQOVI [Suspect]
     Active Substance: CEDAZURIDINE\DECITABINE
     Dosage: UNK (3 TABLETS PER CYCLE)
     Route: 048

REACTIONS (7)
  - Diverticulitis [Unknown]
  - Rhinalgia [Unknown]
  - Gingival bleeding [Unknown]
  - Contusion [Unknown]
  - Pyrexia [Unknown]
  - Inappropriate schedule of product administration [Unknown]
  - Drug ineffective [Unknown]
